FAERS Safety Report 7654515-3 (Version None)
Quarter: 2011Q3

REPORT INFORMATION
  Report Type: 
  Country: None (occurrence: None)
  Receive Date: 20110803
  Receipt Date: 20110721
  Transmission Date: 20111222
  Serious: Yes (Death)
  Sender: FDA-Public Use
  Company Number: CH-ASTRAZENECA-2011SE43321

PATIENT
  Age: 51 Year
  Sex: Male
  Weight: 72 kg

DRUGS (2)
  1. DEPAKENE [Concomitant]
     Route: 048
  2. SEROQUEL [Suspect]
     Route: 048

REACTIONS (1)
  - KETOACIDOSIS [None]
